FAERS Safety Report 13161906 (Version 4)
Quarter: 2018Q1

REPORT INFORMATION
  Report Type: Spontaneous
  Country: IT (occurrence: IT)
  Receive Date: 20170130
  Receipt Date: 20180223
  Transmission Date: 20180508
  Serious: Yes (Hospitalization)
  Sender: FDA-Public Use
  Company Number: IT-ROCHE-1880868

PATIENT
  Age: 14 Year
  Sex: Male
  Weight: 53 kg

DRUGS (2)
  1. ZELBORAF [Suspect]
     Active Substance: VEMURAFENIB
     Dosage: 240 MG BLISTER PACK (ALU/ALU) 56 TABLETS
     Route: 065
     Dates: start: 20170116
  2. ZELBORAF [Suspect]
     Active Substance: VEMURAFENIB
     Indication: GLIOBLASTOMA
     Dosage: 240 MG BLISTER PACK (ALU/ALU) 56 TABLETS
     Route: 065
     Dates: start: 20161124, end: 20161222

REACTIONS (10)
  - Rash [Recovered/Resolved]
  - Pruritus [Recovered/Resolved]
  - Rash [Recovered/Resolved]
  - Off label use [Unknown]
  - Conjunctivitis [Recovered/Resolved]
  - Palmoplantar keratoderma [Recovered/Resolved]
  - Dermatitis [Unknown]
  - Mucosal inflammation [Recovered/Resolved]
  - Pyrexia [Recovered/Resolved]
  - Expired product administered [Unknown]

NARRATIVE: CASE EVENT DATE: 201612
